FAERS Safety Report 11702227 (Version 1)
Quarter: 2015Q4

REPORT INFORMATION
  Report Type: Report from Study
  Country: US (occurrence: US)
  Receive Date: 20151105
  Receipt Date: 20151105
  Transmission Date: 20160304
  Serious: Yes (Death, Hospitalization)
  Sender: FDA-Public Use
  Company Number: US-JAZZ-2015-US-018258

PATIENT
  Age: 39 Year
  Sex: Male

DRUGS (1)
  1. CLOZAPINE. [Suspect]
     Active Substance: CLOZAPINE
     Dosage: UNK MG, QD
     Route: 048

REACTIONS (5)
  - Alveolar lung disease [Fatal]
  - Multi-organ failure [Unknown]
  - Pulmonary embolism [Unknown]
  - Sepsis [Unknown]
  - Pneumonia [Fatal]

NARRATIVE: CASE EVENT DATE: 2015
